FAERS Safety Report 12503168 (Version 2)
Quarter: 2019Q1

REPORT INFORMATION
  Report Type: Report from Study
  Country: BR (occurrence: BR)
  Receive Date: 20160628
  Receipt Date: 20190226
  Transmission Date: 20190417
  Serious: Yes (Hospitalization, Disabling, Other)
  Sender: FDA-Public Use
  Company Number: PHHY2016BR086963

PATIENT
  Age: 78 Year
  Sex: Female

DRUGS (5)
  1. ACLASTA [Suspect]
     Active Substance: ZOLEDRONIC ACID
     Dosage: 1 DF, Q12MO
     Route: 042
     Dates: start: 201608
  2. VITAMINS [Concomitant]
     Active Substance: VITAMINS
     Indication: PRODUCT USED FOR UNKNOWN INDICATION
     Route: 065
  3. ACLASTA [Suspect]
     Active Substance: ZOLEDRONIC ACID
     Dosage: 1 DF, Q12MO
     Route: 042
     Dates: start: 201708
  4. ACLASTA [Suspect]
     Active Substance: ZOLEDRONIC ACID
     Dosage: 1 DF, Q12MO
     Route: 042
     Dates: start: 201809
  5. ACLASTA [Suspect]
     Active Substance: ZOLEDRONIC ACID
     Indication: OSTEOPOROSIS
     Dosage: 1 DF, Q12MO
     Route: 042
     Dates: start: 20150513

REACTIONS (13)
  - Foot fracture [Recovered/Resolved]
  - Pain in extremity [Not Recovered/Not Resolved]
  - Feeling abnormal [Recovered/Resolved]
  - Dysstasia [Recovered/Resolved]
  - Spinal pain [Recovered/Resolved]
  - Weight decreased [Unknown]
  - Limb injury [Unknown]
  - Varicose vein [Not Recovered/Not Resolved]
  - Wound [Recovered/Resolved]
  - Femur fracture [Recovered/Resolved]
  - Pyrexia [Recovered/Resolved]
  - Stasis dermatitis [Not Recovered/Not Resolved]
  - Limb injury [Recovered/Resolved]

NARRATIVE: CASE EVENT DATE: 201511
